FAERS Safety Report 20545568 (Version 1)
Quarter: 2022Q1

REPORT INFORMATION
  Report Type: Spontaneous
  Country: CZ (occurrence: CZ)
  Receive Date: 20220303
  Receipt Date: 20220303
  Transmission Date: 20220423
  Serious: Yes (Death, Hospitalization, Other)
  Sender: FDA-Public Use
  Company Number: CZ-MYLANLABS-2022M1016017

PATIENT
  Age: 44 Year
  Sex: Female

DRUGS (4)
  1. SUNITINIB [Interacting]
     Active Substance: SUNITINIB
     Indication: Metastases to lung
     Dosage: 50 MILLIGRAM, QD (FOLLOWED BY 2 WEEKS OFF TREATMENT (SCHEDULE 4/2).)
     Route: 065
     Dates: start: 201709
  2. CLARITHROMYCIN [Interacting]
     Active Substance: CLARITHROMYCIN
     Indication: Metastases to lung
     Dosage: UNK
     Route: 065
  3. AMBROXOL [Concomitant]
     Active Substance: AMBROXOL
     Indication: Bronchitis
     Dosage: UNK
     Route: 065
     Dates: start: 202002
  4. AMOXICILLIN\CLAVULANIC ACID [Concomitant]
     Active Substance: AMOXICILLIN\CLAVULANIC ACID
     Indication: Bronchitis
     Dosage: UNK
     Route: 065
     Dates: start: 202002

REACTIONS (10)
  - Coagulopathy [Fatal]
  - Thrombocytopenia [Fatal]
  - Drug interaction [Fatal]
  - Acute hepatic failure [Fatal]
  - Hepatic necrosis [Fatal]
  - Diarrhoea [Recovered/Resolved]
  - Hypothyroidism [Recovered/Resolved]
  - Hypertension [Recovered/Resolved]
  - Dyspepsia [Recovered/Resolved]
  - Palmar-plantar erythrodysaesthesia syndrome [Recovered/Resolved]
